FAERS Safety Report 8780193 (Version 1)
Quarter: 2012Q4

REPORT INFORMATION
  Report Type: Spontaneous
  Country: PT (occurrence: None)
  Receive Date: 20120829
  Receipt Date: 20120829
  Transmission Date: 20130627
  Serious: Yes (Life-Threatening, Hospitalization)
  Sender: FDA-Public Use
  Company Number: IBUP20120004

PATIENT
  Age: 22 Year
  Sex: Female

DRUGS (1)
  1. IBUPROFEN [Suspect]
     Indication: HEADACHE

REACTIONS (17)
  - Kounis syndrome [None]
  - Rash maculo-papular [None]
  - Abdominal discomfort [None]
  - Disorientation [None]
  - Hypotension [None]
  - Tachycardia [None]
  - Urticaria [None]
  - Heart rate decreased [None]
  - Cardiac aneurysm [None]
  - Haemoglobin increased [None]
  - White blood cell count increased [None]
  - Neutrophil count increased [None]
  - Heart injury [None]
  - Ventricular extrasystoles [None]
  - Ventricular hypokinesia [None]
  - Myocardial infarction [None]
  - Intracardiac thrombus [None]
